FAERS Safety Report 8003725-4 (Version None)
Quarter: 2011Q4

REPORT INFORMATION
  Report Type: 
  Country: None (occurrence: None)
  Receive Date: 20111222
  Receipt Date: 20111212
  Transmission Date: 20120403
  Serious: Yes (Hospitalization, Other)
  Sender: FDA-Public Use
  Company Number: JP-BRISTOL-MYERS SQUIBB COMPANY-15784622

PATIENT
  Age: 32 Year
  Sex: Female
  Weight: 75 kg

DRUGS (6)
  1. ALPRAZOLAM [Concomitant]
     Dosage: TABS
     Dates: start: 20110425
  2. MEILAX [Concomitant]
     Dosage: TABS
     Dates: start: 20110425, end: 20110610
  3. ABILIFY [Suspect]
     Indication: SCHIZOPHRENIA
     Dosage: 6MG TABS 18APR-24APR11,12MG 25APR-10JUN11,18MG 11JUN-21JUL11,24MG 22JUL11-ONG,18MG
     Route: 048
     Dates: start: 20110418
  4. ABILIFY [Suspect]
     Indication: MANIA
     Dosage: 6MG TABS 18APR-24APR11,12MG 25APR-10JUN11,18MG 11JUN-21JUL11,24MG 22JUL11-ONG,18MG
     Route: 048
     Dates: start: 20110418
  5. ZOLPIDEM [Concomitant]
     Dosage: TABS
     Dates: start: 20110808
  6. CLONAZEPAM [Concomitant]
     Dosage: TABS
     Dates: start: 20110418

REACTIONS (3)
  - PREGNANCY [None]
  - LIVE BIRTH [None]
  - THREATENED LABOUR [None]
